FAERS Safety Report 9173392 (Version 1)
Quarter: 2013Q1

REPORT INFORMATION
  Report Type: Spontaneous
  Country: IT (occurrence: None)
  Receive Date: 20130314
  Receipt Date: 20130314
  Transmission Date: 20140127
  Serious: Yes (Other)
  Sender: FDA-Public Use
  Company Number: 1622108

PATIENT
  Age: 50 Year
  Sex: Male
  Weight: 90 kg

DRUGS (1)
  1. (OXALIPLATIN) [Suspect]
     Indication: COLON CANCER
     Dosage: 260 MG MILLIGRAM(S), CYCLICAL, INTRAVENOUS
     Route: 042
     Dates: start: 20130222, end: 20130222

REACTIONS (3)
  - Feeling hot [None]
  - Somnolence [None]
  - Infusion related reaction [None]
